FAERS Safety Report 6877843-8 (Version None)
Quarter: 2010Q3

REPORT INFORMATION
  Report Type: 
  Country: None (occurrence: None)
  Receive Date: 20100727
  Receipt Date: 20060629
  Transmission Date: 20110219
  Serious: No
  Sender: FDA-Public Use
  Company Number: US-PFIZER INC-2006082207

PATIENT
  Sex: Female

DRUGS (2)
  1. CELEBREX [Suspect]
     Indication: ARTHRALGIA
     Dosage: PRN
     Route: 065
  2. ADVIL LIQUI-GELS [Concomitant]
     Indication: ARTHRALGIA

REACTIONS (1)
  - SKIN DISORDER [None]
